FAERS Safety Report 24193364 (Version 1)
Quarter: 2024Q3

REPORT INFORMATION
  Report Type: Spontaneous
  Country: US (occurrence: US)
  Receive Date: 20240809
  Receipt Date: 20240809
  Transmission Date: 20241016
  Serious: No
  Sender: BAYER
  Company Number: US-BAYER-2024A115136

PATIENT
  Age: 87 Year

DRUGS (3)
  1. MIRALAX [Suspect]
     Active Substance: POLYETHYLENE GLYCOL 3350
     Indication: Gastrointestinal disorder
     Route: 048
  2. DULCOLAX NOS [Suspect]
     Active Substance: UNSPECIFIED INGREDIENT
     Indication: Gastrointestinal disorder
  3. SENOKOT [Suspect]
     Active Substance: SENNOSIDES

REACTIONS (1)
  - Drug ineffective [Unknown]
